FAERS Safety Report 6910680-4 (Version None)
Quarter: 2010Q3

REPORT INFORMATION
  Report Type: 
  Country: None (occurrence: None)
  Receive Date: 20100806
  Receipt Date: 20100731
  Transmission Date: 20110219
  Serious: Yes (Death)
  Sender: FDA-Public Use
  Company Number: CO-ROCHE-718249

PATIENT
  Sex: Female

DRUGS (3)
  1. AVASTIN [Suspect]
     Indication: BREAST CANCER
     Dosage: FORM: INFUSION
     Route: 042
     Dates: start: 20100126, end: 20100331
  2. MORPHINE [Concomitant]
     Indication: PAIN
     Dosage: FORM: DROPS, FREQUENCY: AS REQUIRED, DRUG NAME REPORTED AS: MORPHINA.
     Route: 048
  3. TRAMADOL HYDROCHLORIDE [Concomitant]
     Indication: PAIN
     Dosage: FORM:DROPS, FREQUENCY AS REQUIRED.
     Route: 048

REACTIONS (1)
  - MALIGNANT NEOPLASM PROGRESSION [None]
